FAERS Safety Report 9342308 (Version 1)
Quarter: 2013Q2

REPORT INFORMATION
  Report Type: Spontaneous
  Country: US (occurrence: None)
  Receive Date: 20130607
  Receipt Date: 20130607
  Transmission Date: 20140414
  Serious: Yes (Death, Hospitalization)
  Sender: FDA-Public Use
  Company Number: US-CLINIGEN HEALTHCARE LIMITED-003056

PATIENT
  Age: 63 Year
  Sex: Male

DRUGS (1)
  1. FOSCAVIR (FOSCAVIR) [Suspect]

REACTIONS (5)
  - Respiratory failure [None]
  - Septic shock [None]
  - Pneumonia [None]
  - Disease recurrence [None]
  - Pulmonary veno-occlusive disease [None]
